FAERS Safety Report 16634773 (Version 3)
Quarter: 2022Q2

REPORT INFORMATION
  Report Type: Report from Study
  Country: ES (occurrence: ES)
  Receive Date: 20190726
  Receipt Date: 20220401
  Transmission Date: 20220721
  Serious: Yes (Other)
  Sender: FDA-Public Use
  Company Number: ES-GLAXOSMITHKLINE-ES2019GSK129483

PATIENT
  Age: 72 Year
  Sex: Female

DRUGS (2)
  1. TIOTROPIUM [Suspect]
     Active Substance: TIOTROPIUM
     Indication: Chronic obstructive pulmonary disease
     Route: 055
     Dates: start: 20190119, end: 20190131
  2. TIOTROPIUM [Suspect]
     Active Substance: TIOTROPIUM
     Route: 055
     Dates: start: 20170705, end: 20180109

REACTIONS (1)
  - Lower respiratory tract infection [Recovered/Resolved]

NARRATIVE: CASE EVENT DATE: 20190104
